FAERS Safety Report 4650824-0 (Version None)
Quarter: 2005Q2

REPORT INFORMATION
  Report Type: 
  Country: None (occurrence: None)
  Receive Date: 20050503
  Receipt Date: 20050425
  Transmission Date: 20051028
  Serious: Yes (Death, Life-Threatening, Hospitalization)
  Sender: FDA-Public Use
  Company Number: PHFR2005GB01612

PATIENT
  Age: 24 Year
  Sex: Female

DRUGS (8)
  1. DESFERRIOXAMINE MESYLATE [Suspect]
     Indication: BLOOD IRON INCREASED
     Dosage: 1.5G TO 2G OVER 24HRS
     Route: 042
     Dates: start: 20050401, end: 20050415
  2. EFAVIRENZ [Concomitant]
     Indication: HIV INFECTION
     Dosage: 400MG/DAY
  3. DIDANOSINE [Concomitant]
     Indication: HIV INFECTION
     Dosage: 250MG/DAY
  4. LEVOTHYROXINE SODIUM [Concomitant]
     Indication: HYPOTHYROIDISM
     Dosage: 100UG/DAY
  5. CYCLIZINE [Concomitant]
     Dosage: 50MG/DAY
     Dates: start: 20050410, end: 20050414
  6. STAVUDINE [Concomitant]
     Indication: HIV INFECTION
     Dosage: 60MG/DAY
  7. CEFUROXIME [Concomitant]
     Indication: NEUTROPHILIA
     Dosage: 740 MG, TID
     Route: 048
     Dates: start: 20050413, end: 20050414
  8. FRUSEMIDE [Concomitant]
     Dates: start: 20050414

REACTIONS (2)
  - ARRHYTHMIA [None]
  - SUPRAVENTRICULAR TACHYCARDIA [None]
